FAERS Safety Report 7633426-3 (Version None)
Quarter: 2011Q3

REPORT INFORMATION
  Report Type: 
  Country: None (occurrence: None)
  Receive Date: 20110725
  Receipt Date: 20110719
  Transmission Date: 20111222
  Serious: Yes (Other)
  Sender: FDA-Public Use
  Company Number: CA-PFIZER INC-2011158367

PATIENT
  Age: 68 Year
  Sex: Female

DRUGS (5)
  1. SYNTHROID [Concomitant]
     Indication: THYROID THERAPY
     Dosage: UNK
  2. CRESTOR [Concomitant]
     Indication: BLOOD CHOLESTEROL
     Dosage: UNK
  3. ACETYLSALICYLIC ACID [Concomitant]
     Dosage: UNK
  4. XALATAN [Suspect]
     Indication: GLAUCOMA
     Dosage: 1 GTT, AT BEDTIME
     Route: 047
     Dates: start: 20080101
  5. RAMIPRIL [Concomitant]
     Indication: HYPERTENSION
     Dosage: UNK

REACTIONS (4)
  - EYE INFECTION [None]
  - CATARACT [None]
  - IRITIS [None]
  - INTRAOCULAR PRESSURE INCREASED [None]
